FAERS Safety Report 9459116 (Version 1)
Quarter: 2013Q3

REPORT INFORMATION
  Report Type: Spontaneous
  Country: FR (occurrence: FR)
  Receive Date: 20130814
  Receipt Date: 20130814
  Transmission Date: 20140515
  Serious: Yes (Hospitalization)
  Sender: FDA-Public Use
  Company Number: FR-BAXTER-2013BAX031520

PATIENT
  Age: 65 Year
  Sex: Female

DRUGS (4)
  1. ENDOXAN 1000 MG, POUDRE POUR SOLUTION INJECTABLE [Suspect]
     Indication: BREAST CANCER METASTATIC
     Route: 042
     Dates: start: 20130724, end: 20130724
  2. MYOCET [Suspect]
     Indication: BREAST CANCER METASTATIC
     Route: 042
     Dates: start: 20130724, end: 20130724
  3. ONDANSETRON [Concomitant]
     Indication: PREMEDICATION
     Route: 042
     Dates: start: 20130724, end: 20130724
  4. METHYLPREDNISOLONE [Concomitant]
     Indication: PREMEDICATION
     Route: 042
     Dates: start: 20130724, end: 20130724

REACTIONS (2)
  - Back pain [Recovered/Resolved]
  - Infusion related reaction [Recovered/Resolved]
